FAERS Safety Report 8207066-1 (Version None)
Quarter: 2012Q1

REPORT INFORMATION
  Report Type: 
  Country: None (occurrence: None)
  Receive Date: 20120314
  Receipt Date: 20120307
  Transmission Date: 20120608
  Serious: Yes (Hospitalization)
  Sender: FDA-Public Use
  Company Number: US-BAYER-2012-023565

PATIENT
  Age: 47 Year
  Sex: Female

DRUGS (10)
  1. YAZ [Suspect]
     Dosage: UNK
  2. NEXIUM [Concomitant]
     Dosage: 40 MG, DAILY
     Route: 048
     Dates: start: 20070220, end: 20090507
  3. FLEXERIL [Concomitant]
  4. NAPROXEN [Concomitant]
  5. SYNTHROID [Concomitant]
     Dosage: 100 ?G/D, UNK
     Route: 048
     Dates: start: 20050130, end: 20111221
  6. MAXZIDE [Concomitant]
     Dosage: 37.5/25 DAILY
     Route: 048
     Dates: start: 20050415, end: 20111214
  7. TRAZODONE HCL [Concomitant]
     Dosage: 25 MG AT BEDTIME AS NEEDED
     Route: 048
     Dates: start: 20070905, end: 20111202
  8. YASMIN [Suspect]
     Indication: MENSTRUATION IRREGULAR
     Dosage: UNK
  9. LEVOXYL [Concomitant]
     Dosage: 88 ?G, UNK
     Route: 048
     Dates: start: 20050130, end: 20111221
  10. CYMBALTA [Concomitant]
     Dosage: 60 MG, DAILY
     Route: 048
     Dates: start: 20080514, end: 20111219

REACTIONS (1)
  - DEEP VEIN THROMBOSIS [None]
